FAERS Safety Report 7160889-2 (Version None)
Quarter: 2010Q4

REPORT INFORMATION
  Report Type: 
  Country: None (occurrence: None)
  Receive Date: 20101214
  Receipt Date: 20091202
  Transmission Date: 20110411
  Serious: No
  Sender: FDA-Public Use
  Company Number: US-AMGEN-TCS378108

PATIENT

DRUGS (3)
  1. ENBREL [Suspect]
     Indication: RHEUMATOID ARTHRITIS
     Dosage: 50 MG, QWK
     Route: 058
     Dates: start: 20090901
  2. METHOTREXATE [Concomitant]
     Dosage: 2.5 MG, QD
     Route: 048
     Dates: start: 20090101
  3. HYDROXYCHLOROQUINE [Concomitant]
     Dosage: UNK UNK, UNK
     Dates: start: 20090101

REACTIONS (3)
  - ANIMAL SCRATCH [None]
  - RHEUMATOID ARTHRITIS [None]
  - TOOTHACHE [None]
